FAERS Safety Report 25728831 (Version 2)
Quarter: 2025Q3

REPORT INFORMATION
  Report Type: Spontaneous
  Country: AU (occurrence: AU)
  Receive Date: 20250826
  Receipt Date: 20250829
  Transmission Date: 20251020
  Serious: Yes (Other)
  Sender: NOVO NORDISK
  Company Number: None

PATIENT
  Sex: Male

DRUGS (5)
  1. INSULIN ASPART [Suspect]
     Active Substance: INSULIN ASPART
     Indication: Neonatal diabetes mellitus
  2. GLYBURIDE [Suspect]
     Active Substance: GLYBURIDE
     Indication: Neonatal diabetes mellitus
  3. GLYBURIDE [Suspect]
     Active Substance: GLYBURIDE
  4. INSULIN NOS [Concomitant]
     Active Substance: INSULIN NOS
     Indication: Neonatal diabetes mellitus
  5. SODIUM CHLORIDE [Concomitant]
     Active Substance: SODIUM CHLORIDE
     Indication: Vehicle solution use

REACTIONS (3)
  - Hypoglycaemia neonatal [Recovered/Resolved]
  - Diarrhoea [Unknown]
  - Off label use [Unknown]
